FAERS Safety Report 21080091 (Version 1)
Quarter: 2022Q3

REPORT INFORMATION
  Report Type: Spontaneous
  Country: US (occurrence: US)
  Receive Date: 20220714
  Receipt Date: 20220714
  Transmission Date: 20221027
  Serious: Yes (Hospitalization, Other)
  Sender: FDA-Public Use
  Company Number: US-APOTEX-2022AP010017

PATIENT
  Age: 41 Year
  Sex: Female

DRUGS (1)
  1. BUPROPION [Suspect]
     Active Substance: BUPROPION
     Indication: Antidepressant therapy
     Dosage: UNK
     Route: 065

REACTIONS (6)
  - Status epilepticus [Recovered/Resolved]
  - Intentional overdose [Unknown]
  - Haemodynamic instability [Unknown]
  - Toxicity to various agents [Unknown]
  - Antidepressant drug level increased [Unknown]
  - Loss of consciousness [Unknown]
